FAERS Safety Report 9693523 (Version 1)
Quarter: 2013Q4

REPORT INFORMATION
  Report Type: Spontaneous
  Country: US (occurrence: US)
  Receive Date: 20131118
  Receipt Date: 20131118
  Transmission Date: 20140711
  Serious: Yes (Hospitalization)
  Sender: FDA-Public Use
  Company Number: US-GLAXOSMITHKLINE-A1049460A

PATIENT
  Age: 84 Year
  Sex: Female

DRUGS (5)
  1. COREG [Suspect]
     Indication: CARDIAC VALVE DISEASE
     Route: 065
  2. COREG CR [Suspect]
     Indication: CARDIAC VALVE DISEASE
     Dosage: 40MG PER DAY
     Route: 048
     Dates: start: 2008
  3. IMDUR [Suspect]
     Indication: PRODUCT USED FOR UNKNOWN INDICATION
     Route: 065
     Dates: start: 2013
  4. RANEXA [Suspect]
     Indication: PRODUCT USED FOR UNKNOWN INDICATION
     Route: 065
     Dates: start: 2013
  5. LIPITOR [Concomitant]

REACTIONS (4)
  - Dizziness [Not Recovered/Not Resolved]
  - Angina pectoris [Not Recovered/Not Resolved]
  - Headache [Not Recovered/Not Resolved]
  - Off label use [Not Recovered/Not Resolved]
